FAERS Safety Report 7819960-1 (Version None)
Quarter: 2011Q4

REPORT INFORMATION
  Report Type: 
  Country: None (occurrence: None)
  Receive Date: 20111018
  Receipt Date: 20100709
  Transmission Date: 20120403
  Serious: No
  Sender: FDA-Public Use
  Company Number: US-ASTRAZENECA-2010SE32142

PATIENT
  Age: 60 Year
  Sex: Male
  Weight: 78 kg

DRUGS (6)
  1. PULMICORT [Suspect]
     Route: 055
  2. SYMBICORT [Suspect]
     Indication: CHRONIC OBSTRUCTIVE PULMONARY DISEASE
     Dosage: 160/4.5, TWO PUFFS TWO TIMES  A DAY
     Route: 055
     Dates: start: 20090101
  3. ALBUTEROL [Concomitant]
  4. PROAIR HFA [Concomitant]
  5. IPRATROPIUM BROMIDE [Concomitant]
  6. SYMBICORT [Suspect]
     Indication: EMPHYSEMA
     Dosage: 160/4.5, TWO PUFFS TWO TIMES  A DAY
     Route: 055
     Dates: start: 20090101

REACTIONS (3)
  - INCORRECT DOSE ADMINISTERED [None]
  - DYSPNOEA [None]
  - DRUG INEFFECTIVE [None]
